FAERS Safety Report 6686031 (Version 10)
Quarter: 2014Q2

REPORT INFORMATION
  Report Type: Spontaneous
  Country: US (occurrence: US)
  Receive Date: 20080627
  Receipt Date: 20140414
  Transmission Date: 20141212
  Serious: Yes (Hospitalization, Congenital Anomaly, Other)
  Sender: FDA-Public Use
  Company Number: US-PFIZER INC-2008051539

PATIENT
  Sex: Female
  Weight: 3 kg

DRUGS (7)
  1. ZOLOFT [Suspect]
     Dosage: UNK
     Route: 064
  2. BUSPAR [Concomitant]
     Dosage: UNK
     Route: 064
  3. PAXIL [Concomitant]
     Dosage: UNK
     Route: 064
  4. TRI-LEVLEN [Concomitant]
     Dosage: UNK
     Route: 064
  5. HYDROCODONE [Concomitant]
     Dosage: UNK
     Route: 064
  6. HYDROCO/APAP5 [Concomitant]
     Dosage: UNK
     Route: 064
  7. PRENATAL VITAMINS [Concomitant]
     Dosage: UNK
     Route: 064

REACTIONS (20)
  - Maternal exposure during pregnancy [Unknown]
  - Fallot^s tetralogy [Not Recovered/Not Resolved]
  - Congenital coronary artery malformation [Unknown]
  - Electrocardiogram QT prolonged [Recovered/Resolved]
  - Pulmonary hypertension [Unknown]
  - Right atrial dilatation [Unknown]
  - Pneumothorax [Unknown]
  - Pulmonary oedema [Unknown]
  - Aortic valve incompetence [Unknown]
  - Tricuspid valve incompetence [Unknown]
  - Congenital pulmonary artery anomaly [Unknown]
  - Right ventricle outflow tract obstruction [Unknown]
  - Patent ductus arteriosus [Unknown]
  - Cardiomegaly [Unknown]
  - Atrioventricular block first degree [Unknown]
  - Dilatation ventricular [Unknown]
  - Cardiac disorder [Unknown]
  - Congenital anomaly [Unknown]
  - Atrial septal defect [Unknown]
  - Right aortic arch [Unknown]
